FAERS Safety Report 8990843 (Version 1)
Quarter: 2012Q4

REPORT INFORMATION
  Report Type: Spontaneous
  Country: US (occurrence: None)
  Receive Date: 20121226
  Receipt Date: 20121226
  Transmission Date: 20130627
  Serious: Yes (Other)
  Sender: FDA-Public Use
  Company Number: None

PATIENT
  Sex: Female
  Weight: 74.84 kg

DRUGS (5)
  1. EYLEA 2MG/0.5ML REGENERION [Suspect]
     Indication: EXUDATIVE SENILE MACULAR DEGENERATION OF RETINA
     Dosage: 0.2mg every 2 months Intraocular
     Route: 014
     Dates: start: 20120116, end: 20121210
  2. EYLEA 2MG/0.5ML REGENERION [Suspect]
     Indication: EXUDATIVE SENILE MACULAR DEGENERATION OF RETINA
     Dates: start: 20120227
  3. EYLEA 2MG/0.5ML REGENERION [Suspect]
     Indication: EXUDATIVE SENILE MACULAR DEGENERATION OF RETINA
     Dates: start: 20120621
  4. EYLEA 2MG/0.5ML REGENERION [Suspect]
     Indication: EXUDATIVE SENILE MACULAR DEGENERATION OF RETINA
     Dates: start: 20120820
  5. EYLEA 2MG/0.5ML REGENERION [Suspect]
     Indication: EXUDATIVE SENILE MACULAR DEGENERATION OF RETINA
     Dates: start: 20121015

REACTIONS (2)
  - Eye pain [None]
  - Vitreous floaters [None]
